FAERS Safety Report 15882106 (Version 2)
Quarter: 2019Q1

REPORT INFORMATION
  Report Type: Spontaneous
  Country: JP (occurrence: JP)
  Receive Date: 20190128
  Receipt Date: 20190208
  Transmission Date: 20190417
  Serious: Yes (Death)
  Sender: FDA-Public Use
  Company Number: JP-TAKEDA-2019TJP001659

PATIENT
  Age: 73 Year
  Sex: Female

DRUGS (6)
  1. REVLIMID [Concomitant]
     Active Substance: LENALIDOMIDE
     Dosage: UNK
     Route: 048
     Dates: start: 20180801
  2. REVLIMID [Concomitant]
     Active Substance: LENALIDOMIDE
     Indication: GASTROINTESTINAL AMYLOIDOSIS
     Dosage: UNK
     Route: 048
  3. NINLARO [Suspect]
     Active Substance: IXAZOMIB CITRATE
     Indication: GASTROINTESTINAL AMYLOIDOSIS
     Dosage: 2.3 MILLIGRAM
     Route: 048
     Dates: start: 20180801
  4. DEXAMETHASONE. [Concomitant]
     Active Substance: DEXAMETHASONE
     Indication: GASTROINTESTINAL AMYLOIDOSIS
     Dosage: UNK
     Route: 048
  5. DEXAMETHASONE. [Concomitant]
     Active Substance: DEXAMETHASONE
     Dosage: UNK
     Route: 048
     Dates: start: 20180801
  6. ACETYLSALICYLIC ACID [Concomitant]
     Active Substance: ASPIRIN
     Dosage: UNK
     Route: 065

REACTIONS (3)
  - Gastrointestinal amyloidosis [Fatal]
  - Product use in unapproved indication [Unknown]
  - Condition aggravated [Fatal]

NARRATIVE: CASE EVENT DATE: 20180801
